FAERS Safety Report 7499399-1 (Version None)
Quarter: 2011Q2

REPORT INFORMATION
  Report Type: 
  Country: None (occurrence: None)
  Receive Date: 20110516
  Receipt Date: 20110506
  Transmission Date: 20111010
  Serious: Yes (Hospitalization, Disabling, Other)
  Sender: FDA-Public Use
  Company Number: 2010SP018401

PATIENT
  Age: 25 Year
  Sex: Female
  Weight: 99.7913 kg

DRUGS (2)
  1. HYDROCHLOROTHIAZIDE [Concomitant]
  2. NUVARING [Suspect]
     Indication: CONTRACEPTION
     Dosage: VAG
     Route: 067
     Dates: start: 20030101, end: 20040301

REACTIONS (57)
  - PAIN [None]
  - CONVERSION DISORDER [None]
  - CONSTIPATION [None]
  - CHOLELITHIASIS [None]
  - ABASIA [None]
  - EMOTIONAL DISTRESS [None]
  - TREATMENT NONCOMPLIANCE [None]
  - VASCULITIS [None]
  - DILATATION VENTRICULAR [None]
  - BLOOD ALKALINE PHOSPHATASE INCREASED [None]
  - BLOOD CHOLESTEROL INCREASED [None]
  - URINARY TRACT INFECTION [None]
  - RAYNAUD'S PHENOMENON [None]
  - CEREBRAL HAEMORRHAGE [None]
  - UTERINE CERVICAL SQUAMOUS METAPLASIA [None]
  - DIABETES MELLITUS INADEQUATE CONTROL [None]
  - VASOSPASM [None]
  - ASTIGMATISM [None]
  - SLEEP DISORDER [None]
  - MUSCLE STRAIN [None]
  - BRONCHITIS [None]
  - DRUG SCREEN POSITIVE [None]
  - ABDOMINAL PAIN UPPER [None]
  - EYE PAIN [None]
  - CERVICITIS TRICHOMONAL [None]
  - CARPAL TUNNEL SYNDROME [None]
  - HEADACHE [None]
  - DIZZINESS [None]
  - VISUAL ACUITY REDUCED [None]
  - MUSCLE SPASMS [None]
  - CARDIOVASCULAR DISORDER [None]
  - PREGNANCY [None]
  - PROTEUS TEST POSITIVE [None]
  - ROAD TRAFFIC ACCIDENT [None]
  - ANXIETY [None]
  - CONTUSION [None]
  - THROMBOSIS [None]
  - CAESAREAN SECTION [None]
  - DYSPEPSIA [None]
  - BITE [None]
  - ABDOMINAL PAIN [None]
  - DYSARTHRIA [None]
  - HEMIPARESIS [None]
  - TRICUSPID VALVE INCOMPETENCE [None]
  - HYPERTENSION [None]
  - OBESITY [None]
  - CYST [None]
  - CERVICOBRACHIAL SYNDROME [None]
  - CEREBROVASCULAR ACCIDENT [None]
  - DYSPNOEA [None]
  - DRUG EXPOSURE BEFORE PREGNANCY [None]
  - COGNITIVE DISORDER [None]
  - VOMITING [None]
  - NAUSEA [None]
  - CYSTITIS [None]
  - WOUND DEHISCENCE [None]
  - GASTRITIS [None]
